FAERS Safety Report 4968560-X (Version None)
Quarter: 2006Q2

REPORT INFORMATION
  Report Type: 
  Country: None (occurrence: None)
  Receive Date: 20060411
  Receipt Date: 20060329
  Transmission Date: 20061013
  Serious: Yes (Other)
  Sender: FDA-Public Use
  Company Number: US-SP-2006-00722

PATIENT
  Age: 31 Year
  Sex: Male

DRUGS (3)
  1. DECAVAC [Suspect]
     Indication: IMMUNISATION
     Route: 030
     Dates: start: 20060223
  2. TUBERSOL [Suspect]
     Indication: IMMUNISATION
     Route: 023
     Dates: start: 20060223
  3. HEPATITIS B VACCINE [Suspect]
     Indication: IMMUNISATION
     Route: 030
     Dates: start: 20060223

REACTIONS (3)
  - LARYNGOSPASM [None]
  - MUSCLE CONTRACTIONS INVOLUNTARY [None]
  - SYNCOPE [None]
